FAERS Safety Report 7170216-2 (Version None)
Quarter: 2010Q4

REPORT INFORMATION
  Report Type: 
  Country: None (occurrence: None)
  Receive Date: 20101217
  Receipt Date: 20101210
  Transmission Date: 20110411
  Serious: Yes (Other)
  Sender: FDA-Public Use
  Company Number: US-PFIZER INC-2010170257

PATIENT
  Sex: Male

DRUGS (10)
  1. LIPITOR [Suspect]
     Indication: TYPE IIA HYPERLIPIDAEMIA
     Dosage: 20 MG, 1X/DAY
     Dates: start: 20020401, end: 20040101
  2. BUDESONIDE [Concomitant]
  3. ZYRTEC-D 12 HOUR [Concomitant]
  4. LOMOTIL [Concomitant]
  5. PEPCID [Concomitant]
  6. HYOSCYAMINE [Concomitant]
  7. DIOVAN HCT [Concomitant]
  8. MOXIFLOXACIN [Concomitant]
  9. PREDNISONE [Concomitant]
  10. METRONIDAZOLE [Concomitant]

REACTIONS (2)
  - DEAFNESS BILATERAL [None]
  - TINNITUS [None]
